FAERS Safety Report 22528951 (Version 1)
Quarter: 2023Q2

REPORT INFORMATION
  Report Type: Spontaneous
  Country: KR (occurrence: KR)
  Receive Date: 20230607
  Receipt Date: 20230607
  Transmission Date: 20230722
  Serious: Yes (Hospitalization, Other)
  Sender: FDA-Public Use
  Company Number: KR-ORGANON-O2306KOR000092

PATIENT
  Age: 72 Year
  Sex: Female
  Weight: 75 kg

DRUGS (26)
  1. HYDROCHLOROTHIAZIDE\LOSARTAN POTASSIUM [Suspect]
     Active Substance: HYDROCHLOROTHIAZIDE\LOSARTAN POTASSIUM
     Dosage: UNK DOSAGE FORM: FILM COATED TABLET
     Route: 048
     Dates: start: 20151012, end: 20151221
  2. PACLITAXEL [Suspect]
     Active Substance: PACLITAXEL
     Indication: Carcinoma in situ
     Dosage: 175 MILLIGRAM/SQ. METER ;ROUTE REPORTED AS VEIN
     Dates: start: 20150812, end: 20150812
  3. PACLITAXEL [Suspect]
     Active Substance: PACLITAXEL
     Dosage: 175 MILLIGRAM/SQ. METER ;ROUTE REPORTED AS VEIN
     Dates: start: 20150902, end: 20150902
  4. PACLITAXEL [Suspect]
     Active Substance: PACLITAXEL
     Dosage: 175 MILLIGRAM/SQ. METER ;ROUTE REPORTED AS VEIN
     Dates: start: 20150923, end: 20150923
  5. PACLITAXEL [Suspect]
     Active Substance: PACLITAXEL
     Dosage: 175 MILLIGRAM/SQ. METER ;ROUTE REPORTED AS VEIN
     Dates: start: 20151110, end: 20151110
  6. CARBOPLATIN [Suspect]
     Active Substance: CARBOPLATIN
     Indication: Carcinoma in situ
     Dosage: UNK ROUTE OF ADMINISTRATION REPORTED AS VEIN
     Dates: start: 20150812, end: 20150923
  7. CARBOPLATIN [Suspect]
     Active Substance: CARBOPLATIN
     Dosage: UNK ROUTE OF ADMINISTRATION REPORTED AS VEIN
     Dates: start: 20151110, end: 20151110
  8. CARBOPLATIN [Suspect]
     Active Substance: CARBOPLATIN
     Dosage: UNK ROUTE OF ADMINISTRATION REPORTED AS VEIN
     Dates: start: 20151210, end: 20151210
  9. AMLODIPINE BESYLATE [Concomitant]
     Active Substance: AMLODIPINE BESYLATE
     Dosage: UNK, DOSAGE FORM UNCOATED TABLET
     Route: 048
     Dates: start: 199401, end: 20151202
  10. LEVOTHYROXINE SODIUM [Concomitant]
     Active Substance: LEVOTHYROXINE SODIUM
     Dosage: UNK, DOSAGE FORM UNCOATED TABLET
     Route: 048
     Dates: start: 20151015
  11. CIMETIDINE [Concomitant]
     Active Substance: CIMETIDINE
     Dosage: UNK,
     Route: 048
     Dates: start: 20150812, end: 20150812
  12. ISOLEUCINE;LEUCINE;VALINE [Concomitant]
     Dosage: UNK
     Route: 048
     Dates: start: 20151019, end: 20151218
  13. BISOPROLOL FUMARATE [Concomitant]
     Active Substance: BISOPROLOL FUMARATE
     Dosage: UNK
     Route: 048
     Dates: start: 20151013, end: 20151130
  14. BISOPROLOL FUMARATE [Concomitant]
     Active Substance: BISOPROLOL FUMARATE
     Dosage: UNK
     Dates: start: 20151201, end: 20151226
  15. PROPAFENONE HYDROCHLORIDE [Concomitant]
     Active Substance: PROPAFENONE HYDROCHLORIDE
     Dosage: UNK
     Route: 048
     Dates: start: 20150922, end: 20151226
  16. CHLORPHENIRAMINE MALEATE [Concomitant]
     Active Substance: CHLORPHENIRAMINE MALEATE
     Dosage: UNK, DOSAGE FORM UNCOATED TABLET
     Route: 048
     Dates: start: 20150812
  17. ACETAMINOPHEN [Concomitant]
     Active Substance: ACETAMINOPHEN
     Dosage: 1950 MILLIGRAM
     Route: 048
     Dates: start: 20151023, end: 20151208
  18. ACETAMINOPHEN [Concomitant]
     Active Substance: ACETAMINOPHEN
     Dosage: UNK
     Route: 048
     Dates: start: 20150813, end: 20151217
  19. REBAMIPIDE [Concomitant]
     Active Substance: REBAMIPIDE
     Dosage: 300 MILLIGRAM
     Route: 048
     Dates: start: 20151027, end: 20151218
  20. METHYLPREDNISOLONE ACEPONATE [Concomitant]
     Active Substance: METHYLPREDNISOLONE ACEPONATE
     Dosage: UNK ; SKIN CREAM; ROUTE OF ADMINISTRATION REPORTED AS EXTERNAL USE
     Dates: start: 20151027, end: 20151217
  21. MAGNESIUM LACTATE\PYRIDOXINE HYDROCHLORIDE [Concomitant]
     Active Substance: MAGNESIUM LACTATE\PYRIDOXINE HYDROCHLORIDE
     Dosage: UNK (DOSAGE FORM: ENTERIC FILM COATED TABLET
     Route: 048
     Dates: start: 20151028, end: 20151218
  22. DEXAMETHASONE [Concomitant]
     Active Substance: DEXAMETHASONE
     Dosage: UNK
     Dates: start: 20150812
  23. PANTOPRAZOLE SODIUM [Concomitant]
     Active Substance: PANTOPRAZOLE SODIUM
     Dosage: UNK
     Route: 048
     Dates: start: 20151001, end: 20151218
  24. RAMOSETRON HYDROCHLORIDE [Concomitant]
     Active Substance: RAMOSETRON HYDROCHLORIDE
     Dosage: UNK; ORALLY DISINTEGRATING TABLETS
     Route: 048
     Dates: start: 20150902
  25. GABAPENTIN [Concomitant]
     Active Substance: GABAPENTIN
     Dosage: UNK DOSAGE FORM HARD CAPSULE POWDER
     Route: 048
     Dates: start: 20151028, end: 20151218
  26. CALCIUM POLYSTYRENE SULFONATE [Concomitant]
     Active Substance: CALCIUM POLYSTYRENE SULFONATE
     Dosage: UNK, DOSAGE FORM POWDER FOR SOLUTION
     Route: 048
     Dates: start: 20151210, end: 20151225

REACTIONS (1)
  - Sepsis [Recovered/Resolved]

NARRATIVE: CASE EVENT DATE: 20151226
